FAERS Safety Report 16325394 (Version 1)
Quarter: 2019Q2

REPORT INFORMATION
  Report Type: Spontaneous
  Country: NG (occurrence: NG)
  Receive Date: 20190517
  Receipt Date: 20190517
  Transmission Date: 20190711
  Serious: Yes (Death)
  Sender: FDA-Public Use
  Company Number: NG-PFIZER INC-2019209312

PATIENT

DRUGS (2)
  1. MERONEM [Suspect]
     Active Substance: MEROPENEM
     Indication: INFECTION
     Dosage: UNK
  2. TYGACIL [Suspect]
     Active Substance: TIGECYCLINE
     Indication: INFECTION

REACTIONS (1)
  - Cardiac arrest [Fatal]
